FAERS Safety Report 6078465-1 (Version None)
Quarter: 2009Q1

REPORT INFORMATION
  Report Type: 
  Country: None (occurrence: None)
  Receive Date: 20090212
  Receipt Date: 20090212
  Transmission Date: 20090719
  Serious: Yes (Hospitalization)
  Sender: FDA-Public Use
  Company Number: None

PATIENT
  Age: 43 Year
  Sex: Male
  Weight: 80.8 kg

DRUGS (16)
  1. BACLOFEN [Suspect]
     Indication: BACK PAIN
     Dosage: 10MG TABLEET DAILY PO
     Route: 048
     Dates: start: 20090131, end: 20090203
  2. BACLOFEN [Suspect]
     Indication: MUSCLE SPASMS
     Dosage: 10MG TABLEET DAILY PO
     Route: 048
     Dates: start: 20090131, end: 20090203
  3. AMITRIPTYLINE [Concomitant]
  4. ASPIRIN [Concomitant]
  5. ATORVASTATIN [Concomitant]
  6. CALCIUM ACETATE [Concomitant]
  7. FLUTICASONE/SALMETEROLOL [Concomitant]
  8. METOPROLOL SUCCINATE [Concomitant]
  9. NEPHROVITE [Concomitant]
  10. NITROGLYCERIN [Concomitant]
  11. PANTOPRAZOLE [Concomitant]
  12. DARBEPOETIN [Concomitant]
  13. APAP TAB [Concomitant]
  14. ALBUTEROL [Concomitant]
  15. NAPROXEN [Concomitant]
  16. SUMATRIPTAN [Concomitant]

REACTIONS (5)
  - BRADYCARDIA [None]
  - DYSPNOEA [None]
  - LOSS OF CONSCIOUSNESS [None]
  - SOMNOLENCE [None]
  - UNRESPONSIVE TO STIMULI [None]
